FAERS Safety Report 8996985 (Version 1)
Quarter: 2012Q4

REPORT INFORMATION
  Report Type: Spontaneous
  Country: GB (occurrence: None)
  Receive Date: 20121220
  Receipt Date: 20121220
  Transmission Date: 20130627
  Serious: Yes (Life-Threatening)
  Sender: FDA-Public Use
  Company Number: 2012AP004192

PATIENT
  Age: 81 Year
  Sex: Male

DRUGS (4)
  1. RAMIPRIL (RAMIPRIL) [Suspect]
     Indication: HYPERTENSION
     Route: 048
     Dates: end: 20121119
  2. CANDESARTAN CILEXETIL (CANDESARTAN CILEXETIL) [Suspect]
     Indication: HYPERTENSION
     Route: 048
     Dates: start: 20101101
  3. CANDESARTAN CILEXETIL (CANDESARTAN CILEXETIL) [Suspect]
     Indication: HYPERTENSION
     Route: 048
     Dates: end: 20121119
  4. NIFEDIPINE (NIFEDIPINE) [Concomitant]

REACTIONS (2)
  - Angioedema [None]
  - Drug prescribing error [None]
